FAERS Safety Report 4382367-6 (Version None)
Quarter: 2004Q2

REPORT INFORMATION
  Report Type: 
  Country: None (occurrence: None)
  Receive Date: 20040621
  Receipt Date: 20040621
  Transmission Date: 20050107
  Serious: Yes (Disabling)
  Sender: FDA-Public Use
  Company Number: None

PATIENT
  Age: 78 Year
  Sex: Male
  Weight: 88.4514 kg

DRUGS (1)
  1. GENTAMICIN [Suspect]
     Indication: PANCYTOPENIA
     Dosage: IV
     Route: 042
     Dates: start: 20020203, end: 20020205

REACTIONS (1)
  - OTOTOXICITY [None]
